FAERS Safety Report 7876248-0 (Version None)
Quarter: 2011Q4

REPORT INFORMATION
  Report Type: 
  Country: None (occurrence: None)
  Receive Date: 20111031
  Receipt Date: 20111021
  Transmission Date: 20120403
  Serious: Yes (Disabling, Other)
  Sender: FDA-Public Use
  Company Number: US-BRISTOL-MYERS SQUIBB COMPANY-16188468

PATIENT
  Age: 49 Year
  Sex: Female

DRUGS (3)
  1. PREDNISONE [Concomitant]
  2. HYDROCODONE BITARTRATE [Concomitant]
  3. SPRYCEL [Suspect]
     Indication: CHRONIC MYELOID LEUKAEMIA
     Route: 048
     Dates: start: 20080101

REACTIONS (13)
  - DEAFNESS [None]
  - SKIN DISORDER [None]
  - GENITAL PAIN [None]
  - UVULITIS [None]
  - VASOMOTOR RHINITIS [None]
  - DYSPEPSIA [None]
  - FATIGUE [None]
  - PAIN [None]
  - GLAUCOMA [None]
  - FUNGAL INFECTION [None]
  - ARTHRALGIA [None]
  - FLUID RETENTION [None]
  - STOMATITIS [None]
